FAERS Safety Report 9474831 (Version 1)
Quarter: 2013Q3

REPORT INFORMATION
  Report Type: Spontaneous
  Country: US (occurrence: US)
  Receive Date: 20130823
  Receipt Date: 20130823
  Transmission Date: 20140515
  Serious: Yes (Hospitalization)
  Sender: FDA-Public Use
  Company Number: PHHY2013US089291

PATIENT
  Age: 12 Year
  Sex: Female

DRUGS (1)
  1. LEVETIRACETAM [Suspect]
     Indication: EPILEPSY

REACTIONS (8)
  - Toxic encephalopathy [Recovered/Resolved]
  - Confusional state [Recovering/Resolving]
  - Somnolence [Recovered/Resolved]
  - Tremor [Recovered/Resolved]
  - Opsoclonus myoclonus [Recovered/Resolved]
  - Electrocardiogram delta waves abnormal [Recovered/Resolved]
  - Muscle twitching [Recovered/Resolved]
  - Respiratory distress [Recovering/Resolving]
